FAERS Safety Report 20064317 (Version 1)
Quarter: 2021Q4

REPORT INFORMATION
  Report Type: Spontaneous
  Country: US (occurrence: US)
  Receive Date: 20211112
  Receipt Date: 20211112
  Transmission Date: 20220303
  Serious: No
  Sender: FDA-Public Use
  Company Number: US-Flexion Therapeutics, Inc.-2021FLS000013

PATIENT
  Sex: Male

DRUGS (2)
  1. ZILRETTA [Suspect]
     Active Substance: TRIAMCINOLONE ACETONIDE
     Indication: Osteoarthritis
     Route: 014
     Dates: start: 20210216, end: 20210216
  2. ZILRETTA [Suspect]
     Active Substance: TRIAMCINOLONE ACETONIDE
     Route: 014
     Dates: start: 202010, end: 202010

REACTIONS (5)
  - Anxiety [Unknown]
  - Fatigue [Unknown]
  - Feeling jittery [Unknown]
  - Depressed mood [Unknown]
  - Irritability [Unknown]

NARRATIVE: CASE EVENT DATE: 20201001
